FAERS Safety Report 4333759-2 (Version None)
Quarter: 2004Q2

REPORT INFORMATION
  Report Type: 
  Country: None (occurrence: None)
  Receive Date: 20040402
  Receipt Date: 20040323
  Transmission Date: 20050107
  Serious: Yes (Hospitalization, Other)
  Sender: FDA-Public Use
  Company Number: 055-0981-M0100179

PATIENT
  Age: 84 Year
  Sex: Female

DRUGS (4)
  1. ATORVASTATIN (ATORVASTATIN) [Suspect]
     Indication: DYSLIPIDAEMIA
     Dosage: 10 MG (DAILY), ORAL
     Route: 048
     Dates: start: 20000101
  2. ALL OTHER THERAPEUTIC PRODUCTS [Suspect]
     Indication: CARDIAC DISORDER
     Dosage: UNKNOWN
     Dates: start: 20040201
  3. AMIODARONE HCL [Concomitant]
  4. VALSARTAN [Concomitant]

REACTIONS (6)
  - ACUTE MYOCARDIAL INFARCTION [None]
  - DYSPNOEA [None]
  - FATIGUE [None]
  - LIVER DISORDER [None]
  - PAIN IN EXTREMITY [None]
  - VOMITING [None]
